FAERS Safety Report 12761145 (Version 1)
Quarter: 2016Q3

REPORT INFORMATION
  Report Type: Spontaneous
  Country: US (occurrence: US)
  Receive Date: 20160920
  Receipt Date: 20160920
  Transmission Date: 20161109
  Serious: No
  Sender: FDA-Public Use
  Company Number: US-STRIDES ARCOLAB LIMITED-2015SP001784

PATIENT

DRUGS (6)
  1. PROZAC [Concomitant]
     Active Substance: FLUOXETINE HYDROCHLORIDE
     Indication: DEPRESSION
     Dosage: 40 MG, TID
     Route: 048
  2. METOPROLOL. [Concomitant]
     Active Substance: METOPROLOL
     Indication: HYPERTENSION
     Dosage: 50 MG, QD
     Route: 048
  3. ATROVENT [Concomitant]
     Active Substance: IPRATROPIUM BROMIDE
     Indication: PRODUCT USED FOR UNKNOWN INDICATION
     Dosage: UNK, QD
     Route: 045
  4. LOVAZA [Concomitant]
     Active Substance: OMEGA-3-ACID ETHYL ESTERS
     Indication: HYPERLIPIDAEMIA
     Dosage: 5 MG, QD
     Route: 048
  5. ERGOCALCIFEROL CAPSULES, USP 1.25MG [Suspect]
     Active Substance: ERGOCALCIFEROL
     Indication: VITAMIN D DEFICIENCY
     Dosage: 1.25 MG, ONCE A WEEK
     Route: 048
     Dates: start: 20151110, end: 20151111
  6. CRESTOR [Concomitant]
     Active Substance: ROSUVASTATIN CALCIUM
     Indication: PRODUCT USED FOR UNKNOWN INDICATION
     Dosage: 20 MG, QD
     Route: 045

REACTIONS (5)
  - Anxiety [Not Recovered/Not Resolved]
  - Dyspnoea [Not Recovered/Not Resolved]
  - Chest pain [Not Recovered/Not Resolved]
  - Chest discomfort [Not Recovered/Not Resolved]
  - Dysphagia [Not Recovered/Not Resolved]

NARRATIVE: CASE EVENT DATE: 20151111
